FAERS Safety Report 7900906-2 (Version None)
Quarter: 2011Q4

REPORT INFORMATION
  Report Type: 
  Country: None (occurrence: None)
  Receive Date: 20111108
  Receipt Date: 20111025
  Transmission Date: 20120403
  Serious: Yes (Other)
  Sender: FDA-Public Use
  Company Number: CA-ELI_LILLY_AND_COMPANY-CA201110006988

PATIENT
  Sex: Female

DRUGS (6)
  1. SYNTHROID [Concomitant]
     Dosage: UNK
  2. CALCIUM [Concomitant]
     Dosage: UNK
  3. VITAMIN D [Concomitant]
     Dosage: UNK
  4. DIANE - 35 [Concomitant]
     Dosage: UNK
  5. CYMBALTA [Suspect]
     Dosage: 60 MG, UNK
  6. PANTOLOC                           /01263202/ [Concomitant]
     Dosage: UNK

REACTIONS (3)
  - METABOLIC ACIDOSIS [None]
  - BLOOD PRESSURE DIASTOLIC INCREASED [None]
  - BLOOD CREATININE INCREASED [None]
